FAERS Safety Report 12997977 (Version 1)
Quarter: 2016Q4

REPORT INFORMATION
  Report Type: Spontaneous
  Country: US (occurrence: US)
  Receive Date: 20161205
  Receipt Date: 20161205
  Transmission Date: 20170207
  Serious: No
  Sender: FDA-Public Use
  Company Number: US-BAYER-2016-229050

PATIENT
  Age: 74 Year
  Sex: Male
  Weight: 59.86 kg

DRUGS (3)
  1. MIRALAX [Suspect]
     Active Substance: POLYETHYLENE GLYCOL 3350
     Dosage: 1 DF, UNK
     Route: 048
     Dates: start: 2016, end: 2016
  2. ATENOLOL. [Concomitant]
     Active Substance: ATENOLOL
  3. MIRAFIBER SUGAR FREE ORANGE POWDER [Suspect]
     Active Substance: METHYLCELLULOSES
     Dosage: UNK
     Route: 048
     Dates: start: 2016, end: 2016

REACTIONS (3)
  - Product use issue [Unknown]
  - Off label use [Unknown]
  - Dizziness [Recovered/Resolved]
